FAERS Safety Report 5368034-0 (Version None)
Quarter: 2007Q2

REPORT INFORMATION
  Report Type: 
  Country: None (occurrence: None)
  Receive Date: 20070622
  Receipt Date: 20070615
  Transmission Date: 20071010
  Serious: Yes (Hospitalization)
  Sender: FDA-Public Use
  Company Number: US-ALLERGAN-0703871US

PATIENT
  Sex: Female

DRUGS (2)
  1. BOTOX [Suspect]
     Indication: TORTICOLLIS
     Dosage: 350 UNITS, SINGLE
     Route: 030
     Dates: start: 20061201, end: 20061201
  2. BOTOX [Suspect]
     Dosage: 350 UNITS, SINGLE
     Dates: start: 20070312, end: 20070312

REACTIONS (6)
  - BLOOD BLISTER [None]
  - HEADACHE [None]
  - MASS [None]
  - MUSCULOSKELETAL STIFFNESS [None]
  - SWOLLEN TONGUE [None]
  - THROAT TIGHTNESS [None]
